FAERS Safety Report 6959674-3 (Version None)
Quarter: 2010Q3

REPORT INFORMATION
  Report Type: 
  Country: None (occurrence: None)
  Receive Date: 20100823
  Receipt Date: 20100721
  Transmission Date: 20110219
  Serious: No
  Sender: FDA-Public Use
  Company Number: 016131

PATIENT
  Sex: Female
  Weight: 44.9 kg

DRUGS (1)
  1. CIMZIA [Suspect]
     Indication: RHEUMATOID ARTHRITIS
     Dosage: (400 MG, 1ST INJECTION SUBCUTANEOUS)
     Route: 058
     Dates: start: 20100707

REACTIONS (1)
  - RASH [None]
